FAERS Safety Report 20006172 (Version 1)
Quarter: 2021Q4

REPORT INFORMATION
  Report Type: Spontaneous
  Country: US (occurrence: US)
  Receive Date: 20211028
  Receipt Date: 20211028
  Transmission Date: 20220303
  Serious: No
  Sender: FDA-Public Use
  Company Number: None

PATIENT
  Sex: Female

DRUGS (1)
  1. HAEGARDA [Suspect]
     Active Substance: HUMAN C1-ESTERASE INHIBITOR
     Indication: Hereditary angioedema

REACTIONS (7)
  - Fluid retention [None]
  - Oedema [None]
  - Pain [None]
  - Injection site pain [None]
  - Bladder disorder [None]
  - Eye disorder [None]
  - Gastrointestinal disorder [None]
